FAERS Safety Report 19906173 (Version 4)
Quarter: 2021Q4

REPORT INFORMATION
  Report Type: Spontaneous
  Country: ES (occurrence: ES)
  Receive Date: 20210930
  Receipt Date: 20211007
  Transmission Date: 20220303
  Serious: Yes (Death, Other)
  Sender: FDA-Public Use
  Company Number: ES-FRESENIUS KABI-FK202110101

PATIENT
  Age: 51 Year
  Sex: Female

DRUGS (1)
  1. VELCADE [Suspect]
     Active Substance: BORTEZOMIB
     Indication: Plasma cell myeloma
     Dosage: UNK
     Route: 065

REACTIONS (5)
  - Septic shock [Fatal]
  - COVID-19 pneumonia [Unknown]
  - Pyelonephritis acute [Unknown]
  - Pancreatitis acute [Unknown]
  - Posterior reversible encephalopathy syndrome [Unknown]
